FAERS Safety Report 4335595-X (Version None)
Quarter: 2004Q2

REPORT INFORMATION
  Report Type: 
  Country: None (occurrence: None)
  Receive Date: 20040406
  Receipt Date: 20040325
  Transmission Date: 20050107
  Serious: Yes (Hospitalization)
  Sender: FDA-Public Use
  Company Number: 04P-163-0254790-00

PATIENT
  Age: 44 Year
  Sex: Female

DRUGS (2)
  1. SYNTHROID [Suspect]
     Indication: HYPOTHYROIDISM
     Dosage: 125 MCG, 1 IN 1 D, PER ORAL; FOR YEARS
     Route: 048
  2. METOPROLOL TARTRATE [Concomitant]

REACTIONS (7)
  - ALOPECIA [None]
  - CEREBROVASCULAR ACCIDENT [None]
  - CERVICAL VERTEBRAL FRACTURE [None]
  - FALL [None]
  - GRAND MAL CONVULSION [None]
  - HYPERHIDROSIS [None]
  - SUPRAVENTRICULAR TACHYCARDIA [None]
